FAERS Safety Report 7767559-8 (Version None)
Quarter: 2011Q3

REPORT INFORMATION
  Report Type: 
  Country: None (occurrence: None)
  Receive Date: 20110922
  Receipt Date: 20110916
  Transmission Date: 20111222
  Serious: Yes (Death, Other)
  Sender: FDA-Public Use
  Company Number: US-ASTELLAS-2011US005005

PATIENT
  Sex: Female
  Weight: 52 kg

DRUGS (4)
  1. LIPITOR [Concomitant]
     Indication: PRODUCT USED FOR UNKNOWN INDICATION
     Dosage: 20 MG, UID/QD
     Route: 065
  2. ERLOTINIB HYDROCHLORIDE [Suspect]
     Dosage: 100 MG, UID/QD
     Route: 048
  3. ERLOTINIB HYDROCHLORIDE [Suspect]
     Indication: NON-SMALL CELL LUNG CANCER STAGE IIIB
     Dosage: 150 MG, UID/QD
     Route: 048
     Dates: start: 20100901, end: 20101028
  4. ERLOTINIB HYDROCHLORIDE [Suspect]
     Dosage: 75 MG, UID/QD
     Route: 048

REACTIONS (13)
  - JAUNDICE [None]
  - CONJUNCTIVITIS [None]
  - RASH [None]
  - SKIN EXFOLIATION [None]
  - BLOOD BILIRUBIN INCREASED [None]
  - CARDIAC TAMPONADE [None]
  - NAUSEA [None]
  - VOMITING [None]
  - DIARRHOEA [None]
  - MADAROSIS [None]
  - OESOPHAGEAL OEDEMA [None]
  - DYSPNOEA [None]
  - MYALGIA [None]
